FAERS Safety Report 8493638 (Version 3)
Quarter: 2014Q1

REPORT INFORMATION
  Report Type: Report from Study
  Country: DE (occurrence: DE)
  Receive Date: 20120404
  Receipt Date: 20140206
  Transmission Date: 20141002
  Serious: Yes (Life-Threatening, Hospitalization)
  Sender: FDA-Public Use
  Company Number: DE-ROCHE-1056271

PATIENT
  Age: 52 Year
  Sex: Female
  Weight: 50 kg

DRUGS (17)
  1. BEVACIZUMAB [Suspect]
     Indication: COLON CANCER
     Dosage: LAST DOSE PRIOR TO SAE 05/MAR/2012, LAST DOSE ADMINISTERED 5 MG/KG
     Route: 042
     Dates: start: 20120104, end: 20120724
  2. BEVACIZUMAB [Suspect]
     Route: 042
     Dates: start: 20120220, end: 20120323
  3. BEVACIZUMAB [Suspect]
     Route: 042
     Dates: start: 20120814
  4. OXALIPLATIN [Suspect]
     Indication: COLON CANCER
     Dosage: LAST DOSE PRIOR TO SAE 29/MAR/2012, LAST DOSE ADMINISTERED 85 MG/M2
     Route: 042
     Dates: start: 20120104, end: 20120724
  5. OXALIPLATIN [Suspect]
     Route: 042
     Dates: start: 20120319
  6. OXALIPLATIN [Suspect]
     Dosage: DOSE REDUCED
     Route: 042
     Dates: start: 20120514
  7. OXALIPLATIN [Suspect]
     Route: 042
     Dates: start: 20120814
  8. FOLINIC ACID [Suspect]
     Indication: COLON CANCER
     Dosage: LAST DOSE PRIOR TO SAE 05/MAR/2012, LAST ADMINISTERED DOSE: 200 MG/M2
     Route: 042
     Dates: start: 20120104, end: 20120724
  9. FOLINIC ACID [Suspect]
     Route: 042
     Dates: start: 20120814
  10. FOLINIC ACID [Suspect]
     Dosage: DOSE REDUCED
     Route: 042
     Dates: start: 20120514
  11. FOLINIC ACID [Suspect]
     Route: 042
     Dates: start: 20120329, end: 20120402
  12. 5-FLUOROURACIL [Suspect]
     Indication: COLON CANCER
     Dosage: LAST DOSE PRIOR TO SAE 05/MAR/2012, LAST ADMINISTERED DOSE: 3200 MG/M2
     Route: 042
     Dates: start: 20120104, end: 20120724
  13. 5-FLUOROURACIL [Suspect]
     Route: 042
     Dates: start: 20120814
  14. 5-FLUOROURACIL [Suspect]
     Dosage: DOSE REDUCED
     Route: 042
     Dates: start: 20120514
  15. IRINOTECAN [Suspect]
     Indication: COLON CANCER
     Dosage: LAST DOSE PRIOR TO SAE 05/MAR/2012, LAST ADMINISTERED DOSE: 165 MG/M2
     Route: 042
     Dates: start: 20120104, end: 20120724
  16. IRINOTECAN [Suspect]
     Dosage: LAST DOSE PRIOR TO SAE 05/MAR/2012, LAST ADMINISTERED DOSE: 165 MG/M2
     Route: 042
     Dates: start: 20120814
  17. IRINOTECAN [Suspect]
     Dosage: DOSE REDUCED
     Route: 042
     Dates: start: 20120514

REACTIONS (6)
  - Eating disorder [Recovered/Resolved]
  - Gastroenteritis norovirus [Recovered/Resolved]
  - Cholecystitis acute [Recovered/Resolved]
  - Hyperbilirubinaemia [Recovered/Resolved]
  - Ileus [Recovered/Resolved with Sequelae]
  - Neutropenia [Recovered/Resolved]
